FAERS Safety Report 10970622 (Version 1)
Quarter: 2015Q1

REPORT INFORMATION
  Report Type: Spontaneous
  Country: JP (occurrence: JP)
  Receive Date: 20150331
  Receipt Date: 20150331
  Transmission Date: 20150721
  Serious: Yes (Hospitalization, Other)
  Sender: FDA-Public Use
  Company Number: GXJP2015JP000648

PATIENT
  Age: 77 Year
  Sex: Female

DRUGS (2)
  1. CEFTRIAXONE NA FOR INTRAVENOUS INJECTION [Suspect]
     Active Substance: CEFTRIAXONE
     Indication: PYREXIA
     Dosage: 2 G, UNK
     Route: 041
     Dates: start: 20140206, end: 20140206
  2. CEFTRIAXONE NA FOR INTRAVENOUS INJECTION [Suspect]
     Active Substance: CEFTRIAXONE
     Dosage: 2 G, UNK
     Route: 041
     Dates: start: 20140213, end: 20140213

REACTIONS (5)
  - Inflammation [Recovering/Resolving]
  - White blood cell count decreased [None]
  - Aspiration bronchial [Recovering/Resolving]
  - Bronchitis [Recovering/Resolving]
  - Liver disorder [Recovered/Resolved]

NARRATIVE: CASE EVENT DATE: 20140215
